FAERS Safety Report 10974207 (Version 1)
Quarter: 2015Q2

REPORT INFORMATION
  Report Type: Report from Study
  Country: GB (occurrence: GB)
  Receive Date: 20150401
  Receipt Date: 20150401
  Transmission Date: 20150821
  Serious: Yes (Death)
  Sender: FDA-Public Use
  Company Number: GB-ROCHE-1559171

PATIENT
  Age: 71 Year
  Sex: Male

DRUGS (2)
  1. CAPECITABINE. [Suspect]
     Active Substance: CAPECITABINE
     Indication: COLON CANCER
     Route: 048
     Dates: end: 20141231
  2. MITOMYCIN. [Concomitant]
     Active Substance: MITOMYCIN
     Indication: COLON CANCER
     Route: 042
     Dates: end: 20141231

REACTIONS (1)
  - Death [Fatal]
